FAERS Safety Report 11921025 (Version 1)
Quarter: 2016Q1

REPORT INFORMATION
  Report Type: Spontaneous
  Country: US (occurrence: US)
  Receive Date: 20160115
  Receipt Date: 20160115
  Transmission Date: 20160526
  Serious: No
  Sender: FDA-Public Use
  Company Number: US-ASTELLAS-2015US036736

PATIENT
  Sex: Female

DRUGS (2)
  1. VESICARE [Suspect]
     Active Substance: SOLIFENACIN SUCCINATE
     Indication: BLADDER SPASM
     Route: 048
     Dates: start: 2014
  2. MYRBETRIQ [Suspect]
     Active Substance: MIRABEGRON
     Indication: BLADDER SPASM
     Route: 048
     Dates: start: 201509

REACTIONS (8)
  - Insomnia [Unknown]
  - Dry eye [Not Recovered/Not Resolved]
  - Mucosal dryness [Recovered/Resolved]
  - Wrong technique in product usage process [Unknown]
  - Dry throat [Recovered/Resolved]
  - Dysgeusia [Unknown]
  - Off label use [Unknown]
  - Inappropriate schedule of drug administration [Unknown]
